APPROVED DRUG PRODUCT: PERPHENAZINE AND AMITRIPTYLINE HYDROCHLORIDE
Active Ingredient: AMITRIPTYLINE HYDROCHLORIDE; PERPHENAZINE
Strength: 25MG;4MG
Dosage Form/Route: TABLET;ORAL
Application: A071443 | Product #005
Applicant: MYLAN PHARMACEUTICALS INC
Approved: Nov 10, 1988 | RLD: No | RS: Yes | Type: RX